FAERS Safety Report 5037438-8 (Version None)
Quarter: 2006Q2

REPORT INFORMATION
  Report Type: 
  Country: None (occurrence: None)
  Receive Date: 20060622
  Receipt Date: 20060612
  Transmission Date: 20061013
  Serious: Yes (Hospitalization)
  Sender: FDA-Public Use
  Company Number: 2006BI004911

PATIENT
  Age: 45 Year
  Sex: Female
  Weight: 76.2043 kg

DRUGS (4)
  1. AVONEX [Suspect]
     Indication: MULTIPLE SCLEROSIS
     Dosage: 30 UG; QW; IM
     Route: 030
     Dates: start: 20040101, end: 20040101
  2. AVONEX [Suspect]
     Indication: MULTIPLE SCLEROSIS
     Dosage: 30 UG; QW; IM
     Route: 030
     Dates: start: 20060327
  3. CALCIUM WITH VITAMIN D [Concomitant]
  4. MULTIPLE MEDICATIONS NOS [Concomitant]

REACTIONS (17)
  - ABASIA [None]
  - BLOOD PRESSURE DECREASED [None]
  - BREAST CANCER FEMALE [None]
  - DEPRESSION [None]
  - FIBROCYSTIC BREAST DISEASE [None]
  - HYPERTROPHY BREAST [None]
  - INFLUENZA LIKE ILLNESS [None]
  - METASTASES TO LYMPH NODES [None]
  - MYALGIA [None]
  - NAUSEA [None]
  - NEURALGIA [None]
  - NIPPLE PAIN [None]
  - PAIN [None]
  - PYREXIA [None]
  - RENAL IMPAIRMENT [None]
  - STOMACH DISCOMFORT [None]
  - WHITE BLOOD CELL COUNT DECREASED [None]
